FAERS Safety Report 13436499 (Version 1)
Quarter: 2017Q2

REPORT INFORMATION
  Report Type: Spontaneous
  Country: US (occurrence: US)
  Receive Date: 20170412
  Receipt Date: 20170412
  Transmission Date: 20170830
  Serious: No
  Sender: FDA-Public Use
  Company Number: None

PATIENT
  Age: 59 Year
  Sex: Female

DRUGS (1)
  1. IBRANCE [Suspect]
     Active Substance: PALBOCICLIB
     Indication: BREAST CANCER
     Dosage: 125MG DAILY FOR 21 DAYS, 7 DAYS OFF ORAL
     Route: 048
     Dates: start: 20170203

REACTIONS (4)
  - Red blood cell count decreased [None]
  - Balance disorder [None]
  - Platelet count decreased [None]
  - Fatigue [None]

NARRATIVE: CASE EVENT DATE: 20170403
